FAERS Safety Report 18995136 (Version 1)
Quarter: 2021Q1

REPORT INFORMATION
  Report Type: Report from Study
  Country: FR (occurrence: FR)
  Receive Date: 20210311
  Receipt Date: 20210311
  Transmission Date: 20210420
  Serious: Yes (Hospitalization, Other)
  Sender: FDA-Public Use
  Company Number: FR-AMGEN-FRACT2021035474

PATIENT
  Age: 65 Year
  Sex: Female
  Weight: 120 kg

DRUGS (13)
  1. PANITUMUMAB [Suspect]
     Active Substance: PANITUMUMAB
     Dosage: 580 MILLIGRAM
     Route: 042
     Dates: end: 20210208
  2. LEVOFOLINATE [LEVOFOLINIC ACID] [Suspect]
     Active Substance: LEVOLEUCOVORIN
     Dosage: 400 MILLIGRAM
     Route: 042
     Dates: end: 20210208
  3. 5 FU [Suspect]
     Active Substance: FLUOROURACIL
     Indication: COLORECTAL CANCER
     Dosage: UNK
     Route: 042
     Dates: start: 20201102
  4. 5 FU [Suspect]
     Active Substance: FLUOROURACIL
     Dosage: 4850 MILLIGRAM
     Route: 042
     Dates: end: 20210208
  5. CAMPTO [Suspect]
     Active Substance: IRINOTECAN
     Dosage: 240 MILLIGRAM
     Route: 042
     Dates: end: 20201228
  6. PREDNISOLONE. [Concomitant]
     Active Substance: PREDNISOLONE
     Indication: PROPHYLACTIC CHEMOTHERAPY
     Dosage: 60 MILLIGRAM
     Route: 048
     Dates: start: 20201102
  7. LEVOFOLINATE [LEVOFOLINIC ACID] [Suspect]
     Active Substance: LEVOLEUCOVORIN
     Indication: COLORECTAL CANCER
     Dosage: UNK
     Route: 042
     Dates: start: 20201102
  8. ONDANSETRON [Concomitant]
     Active Substance: ONDANSETRON
     Indication: PROPHYLACTIC CHEMOTHERAPY
     Dosage: 16 MILLIGRAM
     Route: 048
     Dates: start: 20201122
  9. APREPITANT. [Concomitant]
     Active Substance: APREPITANT
     Indication: PROPHYLACTIC CHEMOTHERAPY
     Dosage: 80 MILLIGRAM
     Route: 048
     Dates: start: 20201020
  10. CAMPTO [Suspect]
     Active Substance: IRINOTECAN
     Indication: COLORECTAL CANCER
     Dosage: UNK
     Route: 042
     Dates: start: 20201102
  11. OXALIPLATINE [Suspect]
     Active Substance: OXALIPLATIN
     Indication: COLORECTAL CANCER
     Dosage: UNK
     Route: 042
     Dates: start: 20201102
  12. OXALIPLATINE [Suspect]
     Active Substance: OXALIPLATIN
     Dosage: 115 MILLIGRAM
     Route: 042
     Dates: end: 20210208
  13. PANITUMUMAB [Suspect]
     Active Substance: PANITUMUMAB
     Indication: COLORECTAL CANCER
     Dosage: UNK
     Route: 042
     Dates: start: 20201102

REACTIONS (1)
  - Strangulated hernia [Not Recovered/Not Resolved]

NARRATIVE: CASE EVENT DATE: 20210219
